FAERS Safety Report 13831565 (Version 2)
Quarter: 2017Q3

REPORT INFORMATION
  Report Type: Spontaneous
  Country: CA (occurrence: CA)
  Receive Date: 20170803
  Receipt Date: 20170822
  Transmission Date: 20171127
  Serious: Yes (Hospitalization, Other)
  Sender: FDA-Public Use
  Company Number: CA-IMPAX LABORATORIES, INC-2017-IPXL-02298

PATIENT
  Sex: Male

DRUGS (6)
  1. ARIPIPRAZOLE. [Suspect]
     Active Substance: ARIPIPRAZOLE
     Indication: EXPOSURE DURING BREAST FEEDING
     Dosage: UNK
     Route: 063
  2. ARIPIPRAZOLE. [Suspect]
     Active Substance: ARIPIPRAZOLE
     Indication: FOETAL EXPOSURE DURING PREGNANCY
     Dosage: UNK
     Route: 064
  3. LAMOTRIGINE ODT [Suspect]
     Active Substance: LAMOTRIGINE
     Indication: EXPOSURE DURING BREAST FEEDING
     Dosage: UNK,
     Route: 063
  4. SERTRALINE [Suspect]
     Active Substance: SERTRALINE HYDROCHLORIDE
     Indication: FOETAL EXPOSURE DURING PREGNANCY
     Dosage: UNK
     Route: 064
  5. LAMOTRIGINE ODT [Suspect]
     Active Substance: LAMOTRIGINE
     Indication: FOETAL EXPOSURE DURING PREGNANCY
     Dosage: UNK
     Route: 064
  6. SERTRALINE [Suspect]
     Active Substance: SERTRALINE HYDROCHLORIDE
     Indication: EXPOSURE DURING BREAST FEEDING
     Dosage: UNK
     Route: 063

REACTIONS (13)
  - Metabolic acidosis [Recovered/Resolved]
  - Weight decreased [Recovered/Resolved]
  - Peripheral artery thrombosis [Recovered/Resolved]
  - Disseminated intravascular coagulation [Recovered/Resolved]
  - Exposure during breast feeding [Unknown]
  - Foetal exposure during pregnancy [Unknown]
  - Poor feeding infant [Recovered/Resolved]
  - Hypernatraemia [Recovered/Resolved]
  - Dehydration [Recovered/Resolved]
  - Gangrene [Recovered/Resolved with Sequelae]
  - Acute kidney injury [Recovered/Resolved]
  - Drug level increased [Recovered/Resolved]
  - Hypovolaemic shock [Recovered/Resolved]
